FAERS Safety Report 7790767-7 (Version None)
Quarter: 2011Q3

REPORT INFORMATION
  Report Type: 
  Country: None (occurrence: None)
  Receive Date: 20110930
  Receipt Date: 20110907
  Transmission Date: 20111222
  Serious: Yes (Hospitalization)
  Sender: FDA-Public Use
  Company Number: PHHO2009DE14095

PATIENT
  Sex: Female
  Weight: 66 kg

DRUGS (4)
  1. NO TREATMENT RECEIVED [Suspect]
     Indication: RENAL TRANSPLANT
     Dosage: NO TREATMENT
  2. METHYLPREDNISOLONE [Concomitant]
     Indication: RENAL TRANSPLANT
     Dosage: 4MG/DAY
     Route: 048
     Dates: start: 20090123
  3. MYFORTIC [Suspect]
     Indication: RENAL TRANSPLANT
     Dosage: 1440 MG, UNK
     Dates: start: 20090123
  4. SANDIMMUNE [Suspect]
     Indication: RENAL TRANSPLANT
     Dosage: 200 MG, UNK
     Dates: start: 20090123

REACTIONS (3)
  - POST TRANSPLANT DISTAL LIMB SYNDROME [None]
  - ARTHRALGIA [None]
  - BONE LESION [None]
